FAERS Safety Report 4339783-8 (Version None)
Quarter: 2004Q2

REPORT INFORMATION
  Report Type: 
  Country: None (occurrence: None)
  Receive Date: 20040416
  Receipt Date: 20040407
  Transmission Date: 20050107
  Serious: Yes (Life-Threatening, Hospitalization)
  Sender: FDA-Public Use
  Company Number: DE-BRISTOL-MYERS SQUIBB COMPANY-12559969

PATIENT
  Age: 78 Year
  Sex: Female

DRUGS (3)
  1. BONOQ [Suspect]
     Indication: BRONCHITIS
     Route: 048
     Dates: start: 20040206, end: 20040207
  2. METFORMIN HYDROCHLORIDE [Concomitant]
     Indication: DIABETES MELLITUS
  3. METOHEXAL [Concomitant]
     Indication: CARDIAC FAILURE

REACTIONS (1)
  - HYPOGLYCAEMIA [None]
